FAERS Safety Report 5697840-8 (Version None)
Quarter: 2008Q2

REPORT INFORMATION
  Report Type: 
  Country: None (occurrence: None)
  Receive Date: 20080404
  Receipt Date: 20080404
  Transmission Date: 20081010
  Serious: Yes (Life-Threatening, Hospitalization)
  Sender: FDA-Public Use
  Company Number: None

PATIENT
  Age: 53 Year
  Sex: Male
  Weight: 102 kg

DRUGS (1)
  1. BUMINATE 5% [Suspect]
     Indication: HYPOVOLAEMIA
     Dosage: 500ML IV ONCE
     Route: 042
     Dates: start: 20080309

REACTIONS (10)
  - BACTERIA BLOOD IDENTIFIED [None]
  - BACTERIAL CULTURE POSITIVE [None]
  - BLOOD LACTIC ACID ABNORMAL [None]
  - HEART RATE INCREASED [None]
  - HYPOTENSION [None]
  - INFUSION RELATED REACTION [None]
  - PHARMACEUTICAL PRODUCT COMPLAINT [None]
  - POOR QUALITY DRUG ADMINISTERED [None]
  - TACHYPNOEA [None]
  - THERAPEUTIC PRODUCT CONTAMINATION [None]
